FAERS Safety Report 14282495 (Version 4)
Quarter: 2018Q1

REPORT INFORMATION
  Report Type: Spontaneous
  Country: ZA (occurrence: ZA)
  Receive Date: 20171213
  Receipt Date: 20180124
  Transmission Date: 20180508
  Serious: Yes (Death, Other)
  Sender: FDA-Public Use
  Company Number: ZA-PFIZER INC-2017478460

PATIENT
  Age: 58 Year
  Sex: Male
  Weight: 140 kg

DRUGS (11)
  1. PRECEDEX [Suspect]
     Active Substance: DEXMEDETOMIDINE HYDROCHLORIDE
     Indication: HYPOXIA
     Dosage: 600 ML INFUSION OVER 24 HOURS
     Route: 042
     Dates: start: 20170809, end: 20170815
  2. PRECEDEX [Suspect]
     Active Substance: DEXMEDETOMIDINE HYDROCHLORIDE
     Indication: AGGRESSION
  3. MORPHINE [Concomitant]
     Active Substance: MORPHINE
     Dosage: UNK
  4. PRECEDEX [Suspect]
     Active Substance: DEXMEDETOMIDINE HYDROCHLORIDE
     Indication: ANXIETY DISORDER
     Dosage: 600 ML INFUSION OVER 24 HOURS
     Route: 042
     Dates: start: 20170819, end: 20170822
  5. ADRENALINE (HCL) STEROP [Concomitant]
     Active Substance: EPINEPHRINE
     Dosage: UNK
  6. MIDAZOLAM HCL [Concomitant]
     Active Substance: MIDAZOLAM HYDROCHLORIDE
     Dosage: UNK
  7. ALBUSOL [Concomitant]
     Dosage: UNK
  8. DOBUTAMINE [Concomitant]
     Active Substance: DOBUTAMINE\DOBUTAMINE HYDROCHLORIDE
     Dosage: UNK
  9. PERFALGAN [Concomitant]
     Active Substance: ACETAMINOPHEN
     Indication: ANALGESIC THERAPY
     Dosage: UNK
  10. NEXIAM [Concomitant]
     Active Substance: ESOMEPRAZOLE
     Dosage: UNK
  11. ULTIVA [Concomitant]
     Active Substance: REMIFENTANIL HYDROCHLORIDE
     Dosage: UNK

REACTIONS (4)
  - Acute respiratory distress syndrome [Unknown]
  - Cardiac arrest [Fatal]
  - Product use issue [Unknown]
  - Multiple organ dysfunction syndrome [Unknown]

NARRATIVE: CASE EVENT DATE: 20170809
